FAERS Safety Report 24188335 (Version 1)
Quarter: 2024Q3

REPORT INFORMATION
  Report Type: Spontaneous
  Country: US (occurrence: US)
  Receive Date: 20240808
  Receipt Date: 20240808
  Transmission Date: 20241017
  Serious: No
  Sender: OTSUKA
  Company Number: US-OTSUKA-2023_023956

PATIENT
  Sex: Female
  Weight: 56.7 kg

DRUGS (1)
  1. ABILIFY [Suspect]
     Active Substance: ARIPIPRAZOLE
     Indication: Product used for unknown indication
     Dosage: UNK
     Route: 065

REACTIONS (8)
  - Brain fog [Unknown]
  - Thinking abnormal [Unknown]
  - Head discomfort [Unknown]
  - Feeling abnormal [Unknown]
  - Asthenia [Unknown]
  - Memory impairment [Unknown]
  - Tremor [Unknown]
  - Therapy cessation [Unknown]
